FAERS Safety Report 8154677-8 (Version None)
Quarter: 2012Q1

REPORT INFORMATION
  Report Type: 
  Country: None (occurrence: None)
  Receive Date: 20120221
  Receipt Date: 20120209
  Transmission Date: 20120608
  Serious: Yes (Other)
  Sender: FDA-Public Use
  Company Number: PHHY2012US012157

PATIENT
  Age: 85 Year
  Sex: Female

DRUGS (3)
  1. BUFFERIN [Suspect]
     Indication: ARTHRITIS
     Dosage: UNK
  2. ACETYLSALICYLIC ACID SRT [Suspect]
  3. TRAMADOL HCL [Concomitant]
     Indication: PAIN

REACTIONS (6)
  - TREMOR [None]
  - INCORRECT DRUG ADMINISTRATION DURATION [None]
  - EXOSTOSIS [None]
  - ATRIAL FLUTTER [None]
  - TINNITUS [None]
  - CARDIAC MURMUR [None]
